FAERS Safety Report 10696572 (Version 8)
Quarter: 2015Q1

REPORT INFORMATION
  Report Type: Spontaneous
  Country: CN (occurrence: CN)
  Receive Date: 20150107
  Receipt Date: 20150306
  Transmission Date: 20150721
  Serious: Yes (Other)
  Sender: FDA-Public Use
  Company Number: CN-GLAXOSMITHKLINE-CN2014GSK045198

PATIENT
  Age: 31 Year
  Sex: Male

DRUGS (6)
  1. HEPTODIN [Suspect]
     Active Substance: LAMIVUDINE
     Indication: ACQUIRED IMMUNODEFICIENCY SYNDROME
     Dosage: 1 DF, BID
     Dates: start: 20150202
  2. INTERFERON [Suspect]
     Active Substance: INTERFERON
     Indication: HEPATITIS B
     Dosage: UNK
  3. HEPTODIN [Suspect]
     Active Substance: LAMIVUDINE
     Indication: HEPATITIS B
     Dosage: 1 DF, 1D
     Route: 048
     Dates: start: 200505
  4. HEPSERA [Suspect]
     Active Substance: ADEFOVIR DIPIVOXIL
     Indication: HEPATITIS B
     Dosage: 1 UNK, QD
     Route: 048
     Dates: start: 2007, end: 201405
  5. INTERFERON [Suspect]
     Active Substance: INTERFERON
     Indication: ACQUIRED IMMUNODEFICIENCY SYNDROME
  6. HEPSERA [Suspect]
     Active Substance: ADEFOVIR DIPIVOXIL
     Indication: ACQUIRED IMMUNODEFICIENCY SYNDROME

REACTIONS (36)
  - Viral load increased [Not Recovered/Not Resolved]
  - Laboratory test abnormal [Unknown]
  - Decreased appetite [Not Recovered/Not Resolved]
  - Infertility [Not Recovered/Not Resolved]
  - Night blindness [Not Recovered/Not Resolved]
  - Productive cough [Not Recovered/Not Resolved]
  - Haemorrhage subcutaneous [Recovering/Resolving]
  - Hepatitis B [Unknown]
  - Erectile dysfunction [Not Recovered/Not Resolved]
  - Premature ejaculation [Not Recovered/Not Resolved]
  - Viral infection [Unknown]
  - Confusional state [Not Recovered/Not Resolved]
  - Pyrexia [Recovered/Resolved]
  - Colour blindness [Not Recovered/Not Resolved]
  - Schizophrenia [Not Recovered/Not Resolved]
  - Urethral haemorrhage [Recovered/Resolved]
  - Gastrointestinal haemorrhage [Recovering/Resolving]
  - Blood thrombin increased [Not Recovered/Not Resolved]
  - Haematemesis [Not Recovered/Not Resolved]
  - Depression [Not Recovered/Not Resolved]
  - Macule [Not Recovered/Not Resolved]
  - Chest discomfort [Not Recovered/Not Resolved]
  - Dyspnoea [Not Recovered/Not Resolved]
  - White blood cell count decreased [Not Recovered/Not Resolved]
  - Joint swelling [Not Recovered/Not Resolved]
  - Peritoneal disorder [Unknown]
  - Herpes zoster [Not Recovered/Not Resolved]
  - Oral candidiasis [Not Recovered/Not Resolved]
  - Pyrexia [Not Recovered/Not Resolved]
  - Nausea [Not Recovered/Not Resolved]
  - Liver disorder [Unknown]
  - Overdose [Not Recovered/Not Resolved]
  - Headache [Not Recovered/Not Resolved]
  - Gastric pH decreased [Unknown]
  - Alopecia [Not Recovered/Not Resolved]
  - Dysphonia [Not Recovered/Not Resolved]

NARRATIVE: CASE EVENT DATE: 2007
